FAERS Safety Report 6931245-4 (Version None)
Quarter: 2010Q3

REPORT INFORMATION
  Report Type: 
  Country: None (occurrence: None)
  Receive Date: 20100816
  Receipt Date: 20100806
  Transmission Date: 20110219
  Serious: Yes (Hospitalization, Other)
  Sender: FDA-Public Use
  Company Number: 2010SP037967

PATIENT
  Age: 39 Year
  Sex: Female

DRUGS (4)
  1. REFLEX (MIRTAZAPINE /01293201/) [Suspect]
     Indication: DEPRESSION
     Dosage: 15 MG;QD;PO
     Route: 048
     Dates: start: 20100618, end: 20100630
  2. SERTRALINE HYDROCHLORIDE [Concomitant]
  3. FLUVOXAMINE MALEATE [Concomitant]
  4. REBAMIPIDE [Concomitant]

REACTIONS (4)
  - CONVULSION [None]
  - FALL [None]
  - LOSS OF CONSCIOUSNESS [None]
  - MANIA [None]
